FAERS Safety Report 10520757 (Version 1)
Quarter: 2014Q4

REPORT INFORMATION
  Report Type: Spontaneous
  Country: US (occurrence: US)
  Receive Date: 20141015
  Receipt Date: 20141015
  Transmission Date: 20150528
  Serious: No
  Sender: FDA-Public Use
  Company Number: US-LUNDBECK-DKLU1102149

PATIENT
  Age: 18 Year
  Sex: Male

DRUGS (1)
  1. SABRIL [Suspect]
     Active Substance: VIGABATRIN
     Indication: SEIZURE
     Dosage: TAKE WITH OR WITHOUT FOOD
     Route: 048
     Dates: start: 20131203

REACTIONS (2)
  - Eye disorder [Unknown]
  - Blepharospasm [Unknown]

NARRATIVE: CASE EVENT DATE: 201407
